FAERS Safety Report 6929897-8 (Version None)
Quarter: 2010Q3

REPORT INFORMATION
  Report Type: 
  Country: None (occurrence: None)
  Receive Date: 20100817
  Receipt Date: 20100817
  Transmission Date: 20110219
  Serious: Yes (Life-Threatening, Disabling, Other)
  Sender: FDA-Public Use
  Company Number: None

PATIENT
  Age: 40 Year
  Sex: Male
  Weight: 77.1115 kg

DRUGS (1)
  1. AMITRIPTYLINE HCL [Suspect]
     Dosage: ? I THINK ABOUT 200 MG

REACTIONS (9)
  - ABNORMAL BEHAVIOUR [None]
  - AMNESIA [None]
  - BRAIN INJURY [None]
  - EYE INJURY [None]
  - HYPERSENSITIVITY [None]
  - INTERNAL INJURY [None]
  - LOSS OF CONSCIOUSNESS [None]
  - NAUSEA [None]
  - NERVE INJURY [None]
